FAERS Safety Report 21852570 (Version 1)
Quarter: 2023Q1

REPORT INFORMATION
  Report Type: Other
  Country: DE (occurrence: DE)
  Receive Date: 20230112
  Receipt Date: 20230112
  Transmission Date: 20230418
  Serious: Yes (Death, Other)
  Sender: FDA-Public Use
  Company Number: DE-CELLTRION INC.-2023DE000188

PATIENT

DRUGS (11)
  1. TRASTUZUMAB [Suspect]
     Active Substance: TRASTUZUMAB
     Indication: Breast cancer
     Dosage: 512 MG
     Route: 042
  2. PERJETA [Suspect]
     Active Substance: PERTUZUMAB
     Indication: Breast cancer
     Dosage: 840 MG
     Route: 042
  3. CARBOPLATIN [Suspect]
     Active Substance: CARBOPLATIN
     Indication: Breast cancer
     Dosage: 520 MG
     Route: 042
  4. DOCETAXEL [Suspect]
     Active Substance: DOCETAXEL
     Indication: Breast cancer
     Dosage: 130 MG
     Route: 042
  5. PANTOZOL [Concomitant]
     Active Substance: PANTOPRAZOLE SODIUM
  6. SERTRALINE [Concomitant]
     Active Substance: SERTRALINE HYDROCHLORIDE
  7. AMLODIPINE [Concomitant]
     Active Substance: AMLODIPINE BESYLATE
  8. METOPROLOL [Concomitant]
     Active Substance: METOPROLOL
  9. METHIMAZOLE [Concomitant]
     Active Substance: METHIMAZOLE
  10. ELIQUIS [Concomitant]
     Active Substance: APIXABAN
  11. RAMIPRIL [Concomitant]
     Active Substance: RAMIPRIL

REACTIONS (3)
  - Death [Fatal]
  - Neutropenia [Fatal]
  - Infection [Fatal]

NARRATIVE: CASE EVENT DATE: 20220213
